FAERS Safety Report 19141004 (Version 1)
Quarter: 2021Q2

REPORT INFORMATION
  Report Type: Other
  Country: US (occurrence: US)
  Receive Date: 20210415
  Receipt Date: 20210415
  Transmission Date: 20210717
  Serious: Yes (Hospitalization)
  Sender: FDA-Public Use
  Company Number: US-ROCHE-2808369

PATIENT
  Sex: Male

DRUGS (1)
  1. OCREVUS [Suspect]
     Active Substance: OCRELIZUMAB
     Indication: PRIMARY PROGRESSIVE MULTIPLE SCLEROSIS
     Dosage: ONGOING NO?DATE OF TREATMENT: 17/SEP/2018, 18/FEB/2019, 28/FEB/2019, 23/AUG/2019.
     Route: 065
     Dates: start: 20180312, end: 20200224

REACTIONS (1)
  - Urinary tract infection [Unknown]
